FAERS Safety Report 7073295-6 (Version None)
Quarter: 2010Q4

REPORT INFORMATION
  Report Type: 
  Country: None (occurrence: None)
  Receive Date: 20101029
  Receipt Date: 20100524
  Transmission Date: 20110411
  Serious: No
  Sender: FDA-Public Use
  Company Number: A0861055A

PATIENT
  Age: 64 Year
  Sex: Female

DRUGS (20)
  1. ADVAIR DISKUS 100/50 [Suspect]
     Indication: ASTHMA
     Dosage: 1PUFF TWICE PER DAY
     Route: 055
     Dates: start: 20100301, end: 20100521
  2. NEXIUM [Concomitant]
  3. NYSTATIN [Concomitant]
  4. SINGULAIR [Concomitant]
  5. TOPIRAMATE [Concomitant]
  6. TUMS [Concomitant]
  7. VENLAFAXINE [Concomitant]
  8. AMITRIPTYLINE HCL [Concomitant]
  9. ASCOMP W/CODEINE [Concomitant]
  10. ASPIRIN [Concomitant]
  11. ASTEPRO [Concomitant]
  12. KLONOPIN [Concomitant]
  13. CARISOPRODOL [Concomitant]
  14. CRESTOR [Concomitant]
  15. DURAGESIC-100 [Concomitant]
  16. HYDROCODONE [Concomitant]
  17. FLUTICASONE NASAL SPRAY [Concomitant]
  18. ALBUTEROL SULFATE AND IPRATROPIUM BROMIDE [Concomitant]
  19. HYDROXYZINE [Concomitant]
  20. MELOXICAM [Concomitant]

REACTIONS (2)
  - DYSPHONIA [None]
  - FUNGAL INFECTION [None]
